FAERS Safety Report 6148647-9 (Version None)
Quarter: 2009Q2

REPORT INFORMATION
  Report Type: 
  Country: None (occurrence: None)
  Receive Date: 20090408
  Receipt Date: 20090323
  Transmission Date: 20091009
  Serious: Yes (Hospitalization, Congenital Anomaly)
  Sender: FDA-Public Use
  Company Number: FR-PFIZER INC-2009188305

PATIENT

DRUGS (7)
  1. XANAX [Suspect]
     Route: 048
  2. PREGABALIN [Suspect]
     Dosage: UNK
     Route: 048
     Dates: end: 20080520
  3. ATENOLOL [Suspect]
     Dosage: UNK
     Route: 048
     Dates: end: 20090101
  4. MYOLASTAN [Suspect]
  5. LAROXYL [Suspect]
     Route: 048
  6. ZOLPIDEM [Suspect]
     Dosage: UNK
     Route: 048
     Dates: end: 20080515
  7. NICARDIPINE [Concomitant]

REACTIONS (7)
  - BRADYCARDIA [None]
  - CLINODACTYLY [None]
  - DRUG WITHDRAWAL SYNDROME NEONATAL [None]
  - DYSMORPHISM [None]
  - HYPOTONIA NEONATAL [None]
  - JAUNDICE NEONATAL [None]
  - NEONATAL RESPIRATORY DISTRESS SYNDROME [None]
